FAERS Safety Report 23548801 (Version 1)
Quarter: 2024Q1

REPORT INFORMATION
  Report Type: Spontaneous
  Country: US (occurrence: None)
  Receive Date: 20240219
  Receipt Date: 20240219
  Transmission Date: 20240410
  Serious: Yes (Other)
  Sender: FDA-Public Use
  Company Number: None

PATIENT
  Age: 70 Year
  Sex: Male
  Weight: 76.5 kg

DRUGS (3)
  1. SULFAMETHOXAZOLE AND TRIMETHOPRIM [Suspect]
     Active Substance: SULFAMETHOXAZOLE\TRIMETHOPRIM
     Indication: Irritable bowel syndrome
     Route: 048
     Dates: start: 20240109, end: 20240109
  2. Dorzolamide HCl solution [Concomitant]
  3. KLONOPIN [Concomitant]
     Active Substance: CLONAZEPAM

REACTIONS (11)
  - Muscle spasms [None]
  - Pain in extremity [None]
  - Pain in extremity [None]
  - Back pain [None]
  - Dysstasia [None]
  - Gait disturbance [None]
  - Influenza [None]
  - Dizziness [None]
  - Balance disorder [None]
  - Paraesthesia [None]
  - Dyspnoea [None]

NARRATIVE: CASE EVENT DATE: 20240109
